FAERS Safety Report 11493707 (Version 1)
Quarter: 2015Q3

REPORT INFORMATION
  Report Type: Spontaneous
  Country: US (occurrence: None)
  Receive Date: 20150910
  Receipt Date: 20150910
  Transmission Date: 20151125
  Serious: No
  Sender: FDA-Public Use
  Company Number: None

PATIENT
  Age: 66 Year
  Sex: Female
  Weight: 72.58 kg

DRUGS (20)
  1. OXYBUTIN [Concomitant]
     Active Substance: OXYBUTYNIN
  2. FISH OIL [Concomitant]
     Active Substance: FISH OIL
  3. C-PAP HYDROCODONE [Concomitant]
  4. OXYCODONE [Concomitant]
     Active Substance: OXYCODONE
  5. ESCITALOPRAM [Concomitant]
     Active Substance: ESCITALOPRAM OXALATE
  6. VITAMIN B COMPLEX [Concomitant]
     Active Substance: CYANOCOBALAMIN\DEXPANTHENOL\NIACINAMIDE\PYRIDOXINE HYDROCHLORIDE\RIBOFLAVIN 5^-PHOSPHATE SODIUM\THIAMINE HYDROCHLORIDE\VITAMIN B COMPLEX
  7. TECFIDERA [Concomitant]
     Active Substance: DIMETHYL FUMARATE
  8. D3 [Concomitant]
     Active Substance: 25-HYDROXYCHOLECALCIFEROL, 5-TRANS-
  9. CALCIUM CITRATE W. MAGNESIUM + ZINC [Concomitant]
  10. TECFIDERA [Suspect]
     Active Substance: DIMETHYL FUMARATE
     Indication: MULTIPLE SCLEROSIS
     Dosage: ONE PILL
     Route: 048
  11. GABAPETIN [Concomitant]
     Active Substance: GABAPENTIN
  12. PROBIOTICS [Concomitant]
     Active Substance: PROBIOTICS NOS
  13. CLONAZEPAM. [Concomitant]
     Active Substance: CLONAZEPAM
  14. LISINOPRIL. [Concomitant]
     Active Substance: LISINOPRIL
  15. ALENDRONATE [Concomitant]
     Active Substance: ALENDRONATE SODIUM
  16. TRAMADOL. [Concomitant]
     Active Substance: TRAMADOL
  17. PRAVISTATIN [Concomitant]
  18. COLESTIPOL [Concomitant]
     Active Substance: COLESTIPOL
  19. BUPRION [Concomitant]
  20. VITAMIN B12 [Concomitant]
     Active Substance: CYANOCOBALAMIN

REACTIONS (3)
  - Oral disorder [None]
  - Squamous cell carcinoma [None]
  - Squamous cell carcinoma of skin [None]

NARRATIVE: CASE EVENT DATE: 20150520
